FAERS Safety Report 5888936-6 (Version None)
Quarter: 2008Q3

REPORT INFORMATION
  Report Type: 
  Country: None (occurrence: None)
  Receive Date: 20080919
  Receipt Date: 20080910
  Transmission Date: 20090109
  Serious: Yes (Life-Threatening, Hospitalization, Other)
  Sender: FDA-Public Use
  Company Number: US-ALLERGAN-0807952US

PATIENT
  Age: 30 Month
  Sex: Male
  Weight: 13.5 kg

DRUGS (6)
  1. BOTOX [Suspect]
     Indication: CEREBRAL PALSY
     Dosage: 250 UNITS, SINGLE
     Route: 030
     Dates: start: 20080205, end: 20080205
  2. BOTOX [Suspect]
     Indication: MUSCLE SPASTICITY
     Dosage: 250 UNITS, SINGLE
     Route: 030
     Dates: start: 20080603, end: 20080603
  3. BOTOX [Suspect]
     Dosage: 200 UNITS, SINGLE
     Route: 030
     Dates: start: 20071030, end: 20071030
  4. BOTOX [Suspect]
     Dosage: 200 UNITS, SINGLE
     Route: 030
     Dates: start: 20070717, end: 20070717
  5. BOTOX [Suspect]
     Dosage: 200 UNITS, SINGLE
     Route: 030
     Dates: start: 20070417, end: 20070417
  6. BOTOX [Suspect]
     Dosage: 200 UNITS, SINGLE
     Route: 030
     Dates: start: 20061227, end: 20061227

REACTIONS (9)
  - CHILLS [None]
  - DRUG TOXICITY [None]
  - DYSARTHRIA [None]
  - DYSPHAGIA [None]
  - FATIGUE [None]
  - LETHARGY [None]
  - MUSCULAR WEAKNESS [None]
  - PETIT MAL EPILEPSY [None]
  - SPEECH DISORDER [None]
